FAERS Safety Report 4414040-X (Version None)
Quarter: 2004Q3

REPORT INFORMATION
  Report Type: 
  Country: None (occurrence: None)
  Receive Date: 20040803
  Receipt Date: 20040527
  Transmission Date: 20050211
  Serious: Yes (Other)
  Sender: FDA-Public Use
  Company Number: GB-GLAXOSMITHKLINE-B0334066A

PATIENT
  Age: 42 Year
  Sex: Male

DRUGS (2)
  1. LAMICTAL [Suspect]
     Indication: EPILEPSY
  2. GABAPENTIN [Concomitant]

REACTIONS (2)
  - OPHTHALMOPLEGIA [None]
  - STRABISMUS [None]
